FAERS Safety Report 13522861 (Version 1)
Quarter: 2017Q2

REPORT INFORMATION
  Report Type: Report from Study
  Country: None (occurrence: ZA)
  Receive Date: 20170508
  Receipt Date: 20170508
  Transmission Date: 20170830
  Serious: Yes (Hospitalization)
  Sender: FDA-Public Use
  Company Number: ZA-ABBVIE-17K-143-1966175-00

PATIENT
  Age: 27 Year
  Sex: Female

DRUGS (1)
  1. HUMIRA [Suspect]
     Active Substance: ADALIMUMAB
     Indication: COLITIS ULCERATIVE
     Route: 058
     Dates: start: 20161103

REACTIONS (3)
  - Dysuria [Unknown]
  - Urethral obstruction [Unknown]
  - Ovarian cyst [Unknown]

NARRATIVE: CASE EVENT DATE: 2017
